FAERS Safety Report 14152655 (Version 1)
Quarter: 2017Q4

REPORT INFORMATION
  Report Type: Spontaneous
  Country: FR (occurrence: FR)
  Receive Date: 20171102
  Receipt Date: 20171102
  Transmission Date: 20180321
  Serious: Yes (Life-Threatening, Hospitalization)
  Sender: FDA-Public Use
  Company Number: FR-PFIZER INC-2017467320

PATIENT
  Age: 64 Year
  Sex: Male

DRUGS (10)
  1. THERALENE [Suspect]
     Active Substance: TRIMEPRAZINE
     Dosage: UNK (TOTAL)
     Route: 048
     Dates: start: 20170715, end: 20170715
  2. VERAPAMIL HYDROCHLORIDE. [Suspect]
     Active Substance: VERAPAMIL HYDROCHLORIDE
     Dosage: UNK (TOTAL)
     Route: 048
     Dates: start: 201707, end: 201707
  3. URAPIDIL [Suspect]
     Active Substance: URAPIDIL
     Dosage: 1800 MG, UNK
     Route: 048
     Dates: start: 20170715, end: 20170715
  4. NICARDIPINE HYDROCHLORIDE. [Suspect]
     Active Substance: NICARDIPINE HYDROCHLORIDE
     Dosage: 2700 MG, UNK (TOTAL)
     Route: 048
     Dates: start: 20170715, end: 20170715
  5. ATORVASTATIN [Concomitant]
     Active Substance: ATORVASTATIN
     Dosage: UNK
     Dates: start: 20170715, end: 20170715
  6. RAMIPRIL. [Suspect]
     Active Substance: RAMIPRIL
     Dosage: 350 MG, UNK (TOTAL)
     Route: 048
     Dates: start: 20170715, end: 20170715
  7. PANTOPRAZOLE [Concomitant]
     Active Substance: PANTOPRAZOLE
     Dosage: UNK
     Dates: start: 20170715, end: 20170715
  8. ASPEGIC [Concomitant]
     Active Substance: ASPIRIN DL-LYSINE
     Dosage: UNK
     Dates: start: 20170715, end: 20170715
  9. OXAZEPAM. [Suspect]
     Active Substance: OXAZEPAM
     Dosage: UNK (TOTAL)
     Route: 048
     Dates: start: 20170804, end: 20170804
  10. DOLIPRANE [Suspect]
     Active Substance: ACETAMINOPHEN
     Dosage: UNK (TOTAL)
     Route: 048
     Dates: start: 20170715, end: 20170715

REACTIONS (3)
  - Cardiogenic shock [Unknown]
  - Overdose [Unknown]
  - Coma [Recovered/Resolved]

NARRATIVE: CASE EVENT DATE: 20170715
